FAERS Safety Report 13779793 (Version 2)
Quarter: 2017Q3

REPORT INFORMATION
  Report Type: Spontaneous
  Country: US (occurrence: US)
  Receive Date: 20170723
  Receipt Date: 20170817
  Transmission Date: 20171127
  Serious: Yes (Hospitalization, Other)
  Sender: FDA-Public Use
  Company Number: US-009507513-1707USA008765

PATIENT
  Age: 71 Year

DRUGS (3)
  1. KYPROLIS [Suspect]
     Active Substance: CARFILZOMIB
     Dosage: 53 MG, D 1,2,8,8,15,16, Q28D
     Route: 042
     Dates: end: 20160615
  2. DECADRON [Suspect]
     Active Substance: DEXAMETHASONE
     Indication: PLASMA CELL MYELOMA
     Dosage: 4 MG, D 1,2,8,9,15,16,Q28D
     Route: 042
     Dates: start: 20160202, end: 20170621
  3. KYPROLIS [Suspect]
     Active Substance: CARFILZOMIB
     Indication: PLASMA CELL MYELOMA
     Dosage: 27 MG/M2 D 1,2,8,8,15,16, Q28D
     Route: 042
     Dates: start: 20160210, end: 20170621

REACTIONS (2)
  - Pulmonary mass [Unknown]
  - Chest pain [Recovered/Resolved]

NARRATIVE: CASE EVENT DATE: 2017
